FAERS Safety Report 11398743 (Version 3)
Quarter: 2015Q3

REPORT INFORMATION
  Report Type: Spontaneous
  Country: US (occurrence: US)
  Receive Date: 20150820
  Receipt Date: 20150909
  Transmission Date: 20151125
  Serious: Yes (Hospitalization, Other)
  Sender: FDA-Public Use
  Company Number: US-ASTRAZENECA-2015SE77428

PATIENT
  Age: 28691 Day
  Sex: Female
  Weight: 54.9 kg

DRUGS (11)
  1. ASPIRIN. [Concomitant]
     Active Substance: ASPIRIN
  2. ISOSORBIDE DINITRATE. [Concomitant]
     Active Substance: ISOSORBIDE DINITRATE
  3. ATENOLOL. [Suspect]
     Active Substance: ATENOLOL
     Route: 048
  4. BYDUREON [Suspect]
     Active Substance: EXENATIDE
     Indication: TYPE 2 DIABETES MELLITUS
     Route: 065
  5. CALCIUM MAGNESIUM [Concomitant]
     Active Substance: CALCIUM\MAGNESIUM
  6. ZOLPIDEM [Concomitant]
     Active Substance: ZOLPIDEM\ZOLPIDEM TARTRATE
  7. LANTUS [Concomitant]
     Active Substance: INSULIN GLARGINE
  8. LOSARTAN. [Concomitant]
     Active Substance: LOSARTAN
  9. PREDNISONE. [Concomitant]
     Active Substance: PREDNISONE
  10. AMLODIPINE [Concomitant]
     Active Substance: AMLODIPINE BESYLATE
  11. TACROLIMUS. [Concomitant]
     Active Substance: TACROLIMUS

REACTIONS (4)
  - Hip fracture [Unknown]
  - Loss of consciousness [Unknown]
  - Hypertension [Unknown]
  - Blood glucose increased [Not Recovered/Not Resolved]

NARRATIVE: CASE EVENT DATE: 20150806
